FAERS Safety Report 24788433 (Version 2)
Quarter: 2025Q2

REPORT INFORMATION
  Report Type: Spontaneous
  Country: HR (occurrence: HR)
  Receive Date: 20241230
  Receipt Date: 20250526
  Transmission Date: 20250716
  Serious: Yes (Hospitalization, Other)
  Sender: ROCHE
  Company Number: None

PATIENT
  Age: 29 Year
  Sex: Female

DRUGS (8)
  1. OBINUTUZUMAB [Suspect]
     Active Substance: OBINUTUZUMAB
     Indication: Chronic lymphocytic leukaemia
     Route: 065
     Dates: start: 20230526, end: 20240716
  2. VENETOCLAX [Suspect]
     Active Substance: VENETOCLAX
     Indication: Chronic lymphocytic leukaemia
     Route: 048
     Dates: end: 202405
  3. VENETOCLAX [Suspect]
     Active Substance: VENETOCLAX
     Route: 048
     Dates: start: 2024, end: 2024
  4. VENETOCLAX [Suspect]
     Active Substance: VENETOCLAX
     Route: 048
     Dates: start: 2024, end: 2024
  5. VENETOCLAX [Suspect]
     Active Substance: VENETOCLAX
     Route: 048
     Dates: start: 2024, end: 2024
  6. VENETOCLAX [Suspect]
     Active Substance: VENETOCLAX
     Route: 048
     Dates: start: 2024, end: 20240716
  7. VENETOCLAX [Suspect]
     Active Substance: VENETOCLAX
     Route: 048
     Dates: start: 2024, end: 2024
  8. VENETOCLAX [Suspect]
     Active Substance: VENETOCLAX
     Route: 048
     Dates: start: 20230526

REACTIONS (11)
  - Streptococcal bacteraemia [Unknown]
  - Neutropenia [Unknown]
  - Immunodeficiency common variable [Unknown]
  - Febrile neutropenia [Unknown]
  - Escherichia urinary tract infection [Unknown]
  - Bronchitis [Unknown]
  - Influenza [Unknown]
  - Urinary tract infection [Unknown]
  - Cough [Unknown]
  - Pyrexia [Unknown]
  - Cellulitis [Unknown]

NARRATIVE: CASE EVENT DATE: 20230901
